FAERS Safety Report 25020045 (Version 1)
Quarter: 2025Q1

REPORT INFORMATION
  Report Type: Spontaneous
  Country: US (occurrence: US)
  Receive Date: 20250227
  Receipt Date: 20250227
  Transmission Date: 20250408
  Serious: No
  Sender: DERMAVANT SCIENCES
  Company Number: US-Dermavant-001957

PATIENT

DRUGS (1)
  1. VTAMA [Suspect]
     Active Substance: TAPINAROF
     Indication: Pruritus

REACTIONS (2)
  - Drug ineffective [Unknown]
  - Off label use [Unknown]
